FAERS Safety Report 6555792-2 (Version None)
Quarter: 2010Q1

REPORT INFORMATION
  Report Type: 
  Country: None (occurrence: None)
  Receive Date: 20100128
  Receipt Date: 20100126
  Transmission Date: 20100710
  Serious: Yes (Disabling)
  Sender: FDA-Public Use
  Company Number: BR-ABBOTT-10P-020-0620753-00

PATIENT
  Sex: Female
  Weight: 63 kg

DRUGS (6)
  1. HUMIRA [Suspect]
     Indication: ANKYLOSING SPONDYLITIS
     Route: 058
     Dates: start: 20090606
  2. ORMIGREIN [Concomitant]
     Indication: HEADACHE
     Route: 048
     Dates: start: 20090301
  3. DICLOFENAC POTASSIUM [Concomitant]
     Indication: PAIN
     Route: 054
  4. SIMVASTATIN [Concomitant]
     Indication: BLOOD CHOLESTEROL
     Route: 048
     Dates: start: 20090401
  5. BROMAZEPAM [Concomitant]
     Indication: MUSCLE RELAXANT THERAPY
     Route: 048
  6. DORFLEX [Concomitant]
     Indication: PAIN
     Route: 048

REACTIONS (1)
  - BLINDNESS UNILATERAL [None]
